FAERS Safety Report 12260068 (Version 1)
Quarter: 2016Q2

REPORT INFORMATION
  Report Type: Spontaneous
  Country: US (occurrence: US)
  Receive Date: 20160412
  Receipt Date: 20160412
  Transmission Date: 20160815
  Serious: No
  Sender: FDA-Public Use
  Company Number: US-SA-2015SA144039

PATIENT
  Age: 69 Year
  Sex: Female

DRUGS (2)
  1. ALLEGRA ALLERGY [Suspect]
     Active Substance: FEXOFENADINE HYDROCHLORIDE
     Indication: SEASONAL ALLERGY
     Dosage: TAKEN YEARS AGO
     Route: 048
  2. ALLEGRA ALLERGY [Suspect]
     Active Substance: FEXOFENADINE HYDROCHLORIDE
     Indication: SEASONAL ALLERGY
     Dosage: TOOK THE FIRST TABLET AT AROUND 8 A.M. THIS MORNING AND THEN THE 2ND TABLET AROUND 1:30 P.M.
     Route: 048
     Dates: start: 20150916

REACTIONS (1)
  - Extra dose administered [Unknown]
